FAERS Safety Report 5625084-4 (Version None)
Quarter: 2008Q1

REPORT INFORMATION
  Report Type: 
  Country: None (occurrence: None)
  Receive Date: 20080213
  Receipt Date: 20080201
  Transmission Date: 20080703
  Serious: Yes (Other)
  Sender: FDA-Public Use
  Company Number: US-PFIZER INC-2008011726

PATIENT
  Sex: Female
  Weight: 53.5 kg

DRUGS (2)
  1. CHANTIX [Suspect]
     Indication: EX-SMOKER
     Route: 048
     Dates: start: 20080110, end: 20080130
  2. ZOLOFT [Concomitant]
     Indication: DEPRESSION
     Route: 048
     Dates: start: 20000101

REACTIONS (6)
  - ASTHENIA [None]
  - DEPRESSION [None]
  - HYPERSOMNIA [None]
  - PARANOIA [None]
  - STOMACH DISCOMFORT [None]
  - SUICIDAL IDEATION [None]
